FAERS Safety Report 24313217 (Version 1)
Quarter: 2024Q3

REPORT INFORMATION
  Report Type: Spontaneous
  Country: PE (occurrence: PE)
  Receive Date: 20240912
  Receipt Date: 20240912
  Transmission Date: 20241016
  Serious: Yes (Other)
  Sender: ANI
  Company Number: PE-ANIPHARMA-2024-PE-000010

PATIENT
  Sex: Male

DRUGS (1)
  1. FLUVOXAMINE MALEATE [Suspect]
     Active Substance: FLUVOXAMINE MALEATE
     Indication: Product used for unknown indication

REACTIONS (1)
  - Spermatozoa morphology abnormal [Unknown]
